FAERS Safety Report 6210201-8 (Version None)
Quarter: 2009Q2

REPORT INFORMATION
  Report Type: 
  Country: None (occurrence: None)
  Receive Date: 20090601
  Receipt Date: 20090527
  Transmission Date: 20091009
  Serious: Yes (Death)
  Sender: FDA-Public Use
  Company Number: BR-ABBOTT-08P-020-0492333-00

PATIENT
  Sex: Female

DRUGS (4)
  1. HUMIRA [Suspect]
     Indication: RHEUMATOID ARTHRITIS
     Route: 058
     Dates: start: 20071226
  2. PREDNISONE [Concomitant]
     Indication: DRUG USE FOR UNKNOWN INDICATION
  3. UNKNOWN [Concomitant]
     Indication: DIABETES MELLITUS
  4. UNKNOWN [Concomitant]
     Indication: HYPERTENSION

REACTIONS (3)
  - ARTHRALGIA [None]
  - BONE PAIN [None]
  - GASTRIC DISORDER [None]
